FAERS Safety Report 6377398-0 (Version None)
Quarter: 2009Q3

REPORT INFORMATION
  Report Type: 
  Country: None (occurrence: None)
  Receive Date: 20090925
  Receipt Date: 20090916
  Transmission Date: 20100115
  Serious: Yes (Other)
  Sender: FDA-Public Use
  Company Number: US-JNJFOC-20090905444

PATIENT
  Sex: Female

DRUGS (2)
  1. REMICADE [Suspect]
     Indication: DRUG USE FOR UNKNOWN INDICATION
     Route: 042
  2. HEPARIN [Suspect]
     Indication: INTRAVENOUS CATHETER MANAGEMENT

REACTIONS (6)
  - HEART RATE INCREASED [None]
  - HYPOAESTHESIA [None]
  - NEOPLASM MALIGNANT [None]
  - PYREXIA [None]
  - RABIES [None]
  - RASH [None]
